FAERS Safety Report 10089411 (Version 2)
Quarter: 2014Q2

REPORT INFORMATION
  Report Type: Spontaneous
  Country: JP (occurrence: JP)
  Receive Date: 20140421
  Receipt Date: 20140429
  Transmission Date: 20141212
  Serious: Yes (Hospitalization)
  Sender: FDA-Public Use
  Company Number: JP-B.I. PHARMACEUTICALS,INC./RIDGEFIELD-2014-BI-17848NB

PATIENT
  Age: 89 Year
  Sex: Male
  Weight: 42.5 kg

DRUGS (3)
  1. PRAZAXA [Suspect]
     Indication: ATRIAL FIBRILLATION
     Dosage: 220 MG
     Route: 048
     Dates: start: 201312, end: 20140416
  2. NIFLEC [Suspect]
     Indication: PREMEDICATION
     Route: 065
     Dates: start: 20140416, end: 20140416
  3. VASOLAN/VERAPAMIL HYDROCHLORIDE [Concomitant]
     Route: 065

REACTIONS (3)
  - Activated partial thromboplastin time prolonged [Unknown]
  - International normalised ratio increased [Unknown]
  - Shock [Unknown]
